FAERS Safety Report 8529829-5 (Version None)
Quarter: 2012Q3

REPORT INFORMATION
  Report Type: 
  Country: None (occurrence: None)
  Receive Date: 20120723
  Receipt Date: 20120713
  Transmission Date: 20120928
  Serious: Yes (Other)
  Sender: FDA-Public Use
  Company Number: JP-ASTELLAS-2012JP006606

PATIENT
  Sex: Male

DRUGS (21)
  1. PREDNISOLONE [Suspect]
     Dosage: 5 MG, UNKNOWN/D
     Route: 048
     Dates: start: 20120126
  2. FAMOTIDINE [Concomitant]
     Dosage: 20 MG, UNKNOWN/D
     Route: 048
  3. TACROLIMUS [Suspect]
     Indication: MYASTHENIA GRAVIS
     Dosage: 2 MG, UNKNOWN/D
     Route: 048
     Dates: start: 20110316, end: 20110913
  4. PREDNISOLONE [Suspect]
     Dosage: 15 MG, UNKNOWN/D
     Route: 048
     Dates: start: 20110929, end: 20111102
  5. METFORMIN HCL [Concomitant]
     Dosage: 750 MG, UNKNOWN/D
     Route: 048
     Dates: start: 20110825, end: 20111111
  6. PREDNISOLONE [Suspect]
     Indication: MYASTHENIA GRAVIS
     Dosage: 30 MG, UNKNOWN/D
     Route: 048
     Dates: end: 20110722
  7. PREDNISOLONE [Suspect]
     Dosage: 25 MG, UNKNOWN/D
     Route: 048
     Dates: start: 20110723, end: 20110817
  8. MESTINON [Concomitant]
     Indication: MYASTHENIA GRAVIS
     Dosage: 180 MG, UNKNOWN/D
     Route: 048
     Dates: end: 20110705
  9. SULFAMETHOXAZOLE AND TRIMETHOPRIM [Concomitant]
     Dosage: 3 DF, WEEKLY
     Route: 048
  10. TACROLIMUS [Suspect]
     Dosage: 3 MG, UNKNOWN/D
     Route: 048
     Dates: start: 20110216, end: 20110316
  11. TACROLIMUS [Suspect]
     Dosage: 1 MG, UNKNOWN/D
     Route: 048
     Dates: start: 20110914, end: 20111227
  12. CRESTOR [Concomitant]
     Indication: HYPERLIPIDAEMIA
     Dosage: 2.5 MG, UNKNOWN/D
     Route: 048
  13. TACROLIMUS [Suspect]
     Dosage: 2 MG, UNKNOWN/D
     Route: 048
     Dates: start: 20111228
  14. PREDNISOLONE [Suspect]
     Dosage: 7.5 MG, UNKNOWN/D
     Route: 048
     Dates: start: 20111201, end: 20120125
  15. NIZORAL [Concomitant]
     Indication: TINEA MANUUM
     Route: 061
  16. PREDNISOLONE [Suspect]
     Dosage: 20 MG, UNKNOWN/D
     Route: 048
     Dates: start: 20110818, end: 20110928
  17. PREDNISOLONE [Suspect]
     Dosage: 10 MG, UNKNOWN/D
     Route: 048
     Dates: start: 20111103, end: 20111130
  18. ALFAROL [Concomitant]
     Dosage: 1 UG, UNKNOWN/D
     Route: 048
  19. ACTONEL [Concomitant]
     Dosage: 17.5 MG, UNKNOWN/D
     Route: 048
  20. METFORMIN HCL [Concomitant]
     Dosage: 750 MG, UNKNOWN/D
     Route: 048
     Dates: start: 20110527, end: 20110824
  21. NIZORAL [Concomitant]
     Dosage: UNK
     Route: 061

REACTIONS (3)
  - TINEA MANUUM [None]
  - BETA 2 MICROGLOBULIN URINE INCREASED [None]
  - RENAL IMPAIRMENT [None]
